FAERS Safety Report 8488746-X (Version None)
Quarter: 2012Q3

REPORT INFORMATION
  Report Type: 
  Country: None (occurrence: None)
  Receive Date: 20120705
  Receipt Date: 20120702
  Transmission Date: 20120928
  Serious: Yes (Disabling, Other)
  Sender: FDA-Public Use
  Company Number: US-PFIZER INC-2012080370

PATIENT
  Sex: Female

DRUGS (6)
  1. FLONASE [Concomitant]
     Indication: BRONCHITIS
  2. CHANTIX [Suspect]
     Indication: SMOKING CESSATION THERAPY
     Dosage: 1 STARTER PACK AND 4 PACKS OF 1MG MAINTENANCE
     Dates: start: 20070801, end: 20080101
  3. CHANTIX [Suspect]
     Dosage: STARTING MONTH PACK
     Dates: start: 20100401, end: 20100501
  4. FLONASE [Concomitant]
     Indication: SEASONAL ALLERGY
     Dosage: UNK
     Dates: start: 20050101
  5. FLONASE [Concomitant]
     Indication: CHRONIC OBSTRUCTIVE PULMONARY DISEASE
  6. VENTOLIN [Concomitant]
     Indication: CHRONIC OBSTRUCTIVE PULMONARY DISEASE
     Dosage: UNK
     Dates: start: 20090101

REACTIONS (6)
  - ANXIETY [None]
  - DIZZINESS [None]
  - AMNESIA [None]
  - DEPRESSION [None]
  - COGNITIVE DISORDER [None]
  - VERTIGO [None]
